FAERS Safety Report 16446684 (Version 1)
Quarter: 2019Q2

REPORT INFORMATION
  Report Type: Spontaneous
  Country: JP (occurrence: JP)
  Receive Date: 20190618
  Receipt Date: 20190618
  Transmission Date: 20190711
  Serious: Yes (Hospitalization)
  Sender: FDA-Public Use
  Company Number: PHHY2019JP134603

PATIENT
  Age: 47 Year
  Sex: Male

DRUGS (8)
  1. MILRINONE [Concomitant]
     Active Substance: MILRINONE
     Indication: EOSINOPHILIC MYOCARDITIS
     Dosage: 0.125 UG/KG/ MIN
     Route: 042
  2. DOPAMINE [Concomitant]
     Active Substance: DOPAMINE\DOPAMINE HYDROCHLORIDE
     Indication: BLOOD PRESSURE SYSTOLIC DECREASED
     Route: 042
  3. DOBUTAMINE [Concomitant]
     Active Substance: DOBUTAMINE\DOBUTAMINE HYDROCHLORIDE
     Indication: CARDIAC DYSFUNCTION
     Route: 042
  4. HEPARIN [Concomitant]
     Active Substance: HEPARIN SODIUM
     Indication: PROPHYLAXIS
     Dosage: 1500 U, QD
     Route: 065
  5. AMIODARONE [Suspect]
     Active Substance: AMIODARONE
     Indication: EOSINOPHILIC MYOCARDITIS
     Route: 042
  6. PENTASA [Concomitant]
     Active Substance: MESALAMINE
     Indication: COLITIS ULCERATIVE
     Dosage: 3000 MG, QD
     Route: 065
  7. METHYLPREDNISOLONE. [Suspect]
     Active Substance: METHYLPREDNISOLONE
     Indication: EOSINOPHILIC MYOCARDITIS
     Dosage: 1000 MG, QD
     Route: 065
  8. METHYLPREDNISOLONE. [Suspect]
     Active Substance: METHYLPREDNISOLONE
     Dosage: 125 MG, QD
     Route: 042

REACTIONS (3)
  - Left ventricular dysfunction [Unknown]
  - Hypokinesia [Unknown]
  - Product use in unapproved indication [Unknown]
